FAERS Safety Report 6687556-3 (Version None)
Quarter: 2010Q2

REPORT INFORMATION
  Report Type: 
  Country: None (occurrence: None)
  Receive Date: 20100419
  Receipt Date: 20100415
  Transmission Date: 20101027
  Serious: Yes (Hospitalization)
  Sender: FDA-Public Use
  Company Number: FR-MERCK-1004FRA00058

PATIENT
  Age: 42 Year
  Sex: Female

DRUGS (4)
  1. ISENTRESS [Suspect]
     Indication: HIV INFECTION
     Route: 048
     Dates: start: 20100208, end: 20100303
  2. ZOVIRAX [Suspect]
     Route: 048
     Dates: start: 20100209, end: 20100212
  3. AVAMYS [Concomitant]
     Route: 065
  4. KIVEXA [Concomitant]
     Route: 065

REACTIONS (2)
  - MYALGIA [None]
  - PARAESTHESIA [None]
